FAERS Safety Report 11112072 (Version 2)
Quarter: 2015Q2

REPORT INFORMATION
  Report Type: Spontaneous
  Country: AR (occurrence: AR)
  Receive Date: 20150514
  Receipt Date: 20150522
  Transmission Date: 20150821
  Serious: Yes (Hospitalization)
  Sender: FDA-Public Use
  Company Number: AR-PFIZER INC-2015163021

PATIENT
  Age: 56 Year
  Sex: Female

DRUGS (1)
  1. SUTENT [Suspect]
     Active Substance: SUNITINIB MALATE
     Indication: NEOPLASM MALIGNANT
     Dosage: UNK, 28 DAYS ON 14 DAYS OFF
     Dates: start: 20130130

REACTIONS (5)
  - Abdominal discomfort [Recovering/Resolving]
  - Disease progression [Unknown]
  - Gastroenteritis [Recovered/Resolved]
  - Pain [Recovered/Resolved]
  - Neoplasm malignant [Unknown]

NARRATIVE: CASE EVENT DATE: 201409
